FAERS Safety Report 15957502 (Version 2)
Quarter: 2019Q1

REPORT INFORMATION
  Report Type: Report from Study
  Country: CA (occurrence: CA)
  Receive Date: 20190213
  Receipt Date: 20190306
  Transmission Date: 20190417
  Serious: Yes (Death)
  Sender: FDA-Public Use
  Company Number: CA-TAIHO ONCOLOGY  INC-EU-2019-00410

PATIENT
  Age: 68 Year
  Sex: Female
  Weight: 55 kg

DRUGS (11)
  1. PANTOPRAZOLE [Concomitant]
     Active Substance: PANTOPRAZOLE
     Dosage: NI
  2. ADVAIR HFA [Concomitant]
     Active Substance: FLUTICASONE PROPIONATE\SALMETEROL XINAFOATE
     Dosage: NI
  3. SALBUTAMOL [Concomitant]
     Active Substance: ALBUTEROL
     Dosage: NI
  4. NYSTATIN. [Concomitant]
     Active Substance: NYSTATIN
     Dosage: NI
  5. AMITRIPTYLINE [Concomitant]
     Active Substance: AMITRIPTYLINE
  6. FUROSEMIDE. [Concomitant]
     Active Substance: FUROSEMIDE
     Dosage: NI
  7. MORPHINE [Concomitant]
     Active Substance: MORPHINE
     Dosage: NI
  8. LONSURF [Suspect]
     Active Substance: TIPIRACIL HYDROCHLORIDE\TRIFLURIDINE
     Indication: COLORECTAL CANCER METASTATIC
     Dosage: CYCLE 1 COMPLETED ON 21/DEC/2018
     Route: 048
     Dates: start: 20181210, end: 20181221
  9. BISOPROLOL [Concomitant]
     Active Substance: BISOPROLOL
     Dosage: NI
  10. CYCLOBENZAPRINE. [Concomitant]
     Active Substance: CYCLOBENZAPRINE
     Dosage: NI
  11. NAPROXEN. [Concomitant]
     Active Substance: NAPROXEN
     Dosage: NI

REACTIONS (2)
  - Disease progression [Fatal]
  - Malignant neoplasm progression [None]

NARRATIVE: CASE EVENT DATE: 20190201
